FAERS Safety Report 11827511 (Version 3)
Quarter: 2016Q2

REPORT INFORMATION
  Report Type: Spontaneous
  Country: JP (occurrence: JP)
  Receive Date: 20151211
  Receipt Date: 20160407
  Transmission Date: 20160902
  Serious: Yes (Other)
  Sender: FDA-Public Use
  Company Number: JP-PFIZER INC-2015437032

PATIENT
  Age: 55 Year
  Sex: Male

DRUGS (3)
  1. AMIODARONE HCL [Suspect]
     Active Substance: AMIODARONE HYDROCHLORIDE
     Dosage: 50 MG, UNK
     Route: 065
     Dates: start: 201401, end: 201403
  2. AMIODARONE HCL [Suspect]
     Active Substance: AMIODARONE HYDROCHLORIDE
     Dosage: 100 MG, UNK
     Route: 065
     Dates: start: 201107
  3. AMIODARONE HCL [Suspect]
     Active Substance: AMIODARONE HYDROCHLORIDE
     Dosage: UNK
     Route: 065
     Dates: end: 201401

REACTIONS (2)
  - Interstitial lung disease [Recovered/Resolved]
  - Thyroiditis [Unknown]

NARRATIVE: CASE EVENT DATE: 201401
